FAERS Safety Report 9374397 (Version 1)
Quarter: 2013Q2

REPORT INFORMATION
  Report Type: Spontaneous
  Country: FR (occurrence: FR)
  Receive Date: 20130628
  Receipt Date: 20130628
  Transmission Date: 20140414
  Serious: Yes (Hospitalization)
  Sender: FDA-Public Use
  Company Number: PHHY2013FR066537

PATIENT
  Age: 57 Year
  Sex: Female

DRUGS (3)
  1. EXFORGE [Suspect]
     Indication: HYPERTENSION
     Dosage: 1 DF (160MG VALS/ 5MG AMLO), QD
     Route: 048
     Dates: start: 20100201, end: 20110119
  2. PARACETAMOL [Concomitant]
     Indication: PAIN
     Dosage: UNK UKN, PRN
     Route: 048
     Dates: start: 201008
  3. TAHOR [Concomitant]
     Indication: HYPERCHOLESTEROLAEMIA
     Dosage: UNK UKN, UNK
     Route: 048
     Dates: start: 201005, end: 201008

REACTIONS (1)
  - Hepatocellular injury [Recovered/Resolved]
